FAERS Safety Report 4716843-0 (Version None)
Quarter: 2005Q3

REPORT INFORMATION
  Report Type: 
  Country: None (occurrence: None)
  Receive Date: 20050714
  Receipt Date: 20050602
  Transmission Date: 20060218
  Serious: Yes (Other)
  Sender: FDA-Public Use
  Company Number: 2005086921

PATIENT
  Sex: Male

DRUGS (2)
  1. DILANTIN KAPSEAL [Suspect]
     Indication: ILL-DEFINED DISORDER
  2. ETHANOL (ETHANOL) [Suspect]
     Indication: ALCOHOL USE

REACTIONS (5)
  - ALCOHOL USE [None]
  - CONVULSION [None]
  - HALLUCINATION [None]
  - PHARMACEUTICAL PRODUCT COMPLAINT [None]
  - PSYCHOTIC DISORDER [None]
